APPROVED DRUG PRODUCT: ONDANSETRON HYDROCHLORIDE
Active Ingredient: ONDANSETRON HYDROCHLORIDE
Strength: EQ 2MG BASE/ML
Dosage Form/Route: INJECTABLE;INJECTION
Application: A079039 | Product #001
Applicant: LUITPOLD PHARMACEUTICALS INC
Approved: Nov 18, 2008 | RLD: No | RS: No | Type: DISCN